FAERS Safety Report 7397973-4 (Version None)
Quarter: 2011Q2

REPORT INFORMATION
  Report Type: 
  Country: None (occurrence: None)
  Receive Date: 20110406
  Receipt Date: 20110330
  Transmission Date: 20111010
  Serious: Yes (Life-Threatening, Hospitalization, Other)
  Sender: FDA-Public Use
  Company Number: PHHY2011ES26297

PATIENT
  Age: 71 Year
  Sex: Male

DRUGS (4)
  1. SINTROM 4 [Interacting]
     Indication: CARDIAC VALVE PROSTHESIS USER
     Dosage: UNK
     Dates: end: 20100417
  2. ATORVASTATIN CALCIUM [Concomitant]
  3. BARIPRIL DIU [Concomitant]
  4. ALLOPURINOL [Suspect]

REACTIONS (4)
  - BLOOD CREATININE INCREASED [None]
  - DRUG INTERACTION [None]
  - GASTROINTESTINAL HAEMORRHAGE [None]
  - DIVERTICULAR PERFORATION [None]
